FAERS Safety Report 23725494 (Version 3)
Quarter: 2025Q1

REPORT INFORMATION
  Report Type: Report from Study
  Country: CA (occurrence: CA)
  Receive Date: 20240410
  Receipt Date: 20250313
  Transmission Date: 20250408
  Serious: Yes (Hospitalization, Other)
  Sender: SANDOZ
  Company Number: CA-002147023-NVSC2023CA003005

PATIENT
  Sex: Female

DRUGS (1)
  1. HYRIMOZ [Suspect]
     Active Substance: ADALIMUMAB-ADAZ
     Indication: Crohn^s disease
     Dosage: 40 MG, Q2W
     Route: 058
     Dates: start: 20220311

REACTIONS (9)
  - Renal disorder [Recovering/Resolving]
  - Precancerous condition [Unknown]
  - Vulvar dysplasia [Unknown]
  - General physical health deterioration [Unknown]
  - Fatigue [Unknown]
  - Neoplasm [Unknown]
  - Arthralgia [Unknown]
  - Urinary tract infection [Unknown]
  - Therapeutic product effect decreased [Unknown]
